FAERS Safety Report 8482582-6 (Version None)
Quarter: 2012Q3

REPORT INFORMATION
  Report Type: 
  Country: None (occurrence: None)
  Receive Date: 20120702
  Receipt Date: 20120627
  Transmission Date: 20120928
  Serious: Yes (Hospitalization, Disabling, Other)
  Sender: FDA-Public Use
  Company Number: US-MERCK-1203USA03479

PATIENT
  Age: 77 Year
  Sex: Female

DRUGS (1)
  1. FOSAMAX [Suspect]
     Indication: OSTEOPOROSIS
     Route: 048
     Dates: start: 19980101, end: 20110101

REACTIONS (12)
  - OSTEOPOROSIS [None]
  - CARDIAC FAILURE CONGESTIVE [None]
  - FEMUR FRACTURE [None]
  - ANKLE FRACTURE [None]
  - HIP FRACTURE [None]
  - UPPER LIMB FRACTURE [None]
  - BLOOD CHOLESTEROL INCREASED [None]
  - VEIN DISORDER [None]
  - STRESS FRACTURE [None]
  - FALL [None]
  - LOWER LIMB FRACTURE [None]
  - LOW TURNOVER OSTEOPATHY [None]
